FAERS Safety Report 9517888 (Version 1)
Quarter: 2013Q1

REPORT INFORMATION
  Report Type: Spontaneous
  Country: US (occurrence: None)
  Receive Date: 20130305
  Receipt Date: 20130305
  Transmission Date: 20140127
  Serious: Yes (Other)
  Sender: FDA-Public Use
  Company Number: 163-21880-12114094

PATIENT
  Age: 70 Year
  Sex: Male

DRUGS (9)
  1. REVLIMID (LENALIDOMIDE) (25 MILLIGRAM, CAPSULES) [Suspect]
     Indication: PLASMA CELL MYELOMA
     Dosage: 21 IN 21 D
     Route: 048
     Dates: start: 20080222
  2. ARICEPT (DONEPEZIL HYDROCHLORIDE) [Concomitant]
  3. ASPIRIN (ACETYLSALICYLIC ACID) [Concomitant]
  4. BENEFIBER (CYAMOPSIS TETRAGONOLOBA GUM) [Concomitant]
  5. CALCIUM (CALCIUM) [Concomitant]
  6. CLARITIN (LORATADINE) [Concomitant]
  7. DONEPEZIL HCL (DONEPEZIL HYDROCHLORIDE) [Concomitant]
  8. EFFEXOR (VENLAFAXINE HYDROCHLORIDE) [Concomitant]
  9. ALBUTEROL SULFATE (SALBUTAMOL SULFATE) [Concomitant]

REACTIONS (1)
  - Plasma cell myeloma [None]
